FAERS Safety Report 23302036 (Version 1)
Quarter: 2023Q4

REPORT INFORMATION
  Report Type: Spontaneous
  Country: CA (occurrence: CA)
  Receive Date: 20231215
  Receipt Date: 20231215
  Transmission Date: 20240110
  Serious: Yes (Hospitalization)
  Sender: FDA-Public Use
  Company Number: CA-Osmotica_Pharmaceutical_US_LLC-POI0573202300207

PATIENT
  Age: 29 Year

DRUGS (5)
  1. DIVIGEL [Suspect]
     Active Substance: ESTRADIOL
     Indication: Blood oestrogen decreased
     Route: 062
     Dates: start: 20231205, end: 20231205
  2. DIVIGEL [Suspect]
     Active Substance: ESTRADIOL
     Route: 062
     Dates: start: 2020, end: 20231109
  3. COVID-19 VACCINE NOS [Suspect]
     Active Substance: COVID-19 VACCINE NOS
     Indication: COVID-19 immunisation
     Route: 030
     Dates: start: 202207, end: 202207
  4. PROMETRIUM [Suspect]
     Active Substance: PROGESTERONE
     Indication: Product used for unknown indication
     Dosage: VARYING DOSES OF 200 MG TO 500 MG
  5. PROVERA [Suspect]
     Active Substance: MEDROXYPROGESTERONE ACETATE
     Indication: Product used for unknown indication
     Dosage: VARYING DOSES OF 5 MG TO 10 MG

REACTIONS (3)
  - Hysterectomy [Recovering/Resolving]
  - Noninfective encephalitis [Unknown]
  - Pyrexia [Recovering/Resolving]

NARRATIVE: CASE EVENT DATE: 20220701
